FAERS Safety Report 7440854-8 (Version None)
Quarter: 2011Q2

REPORT INFORMATION
  Report Type: 
  Country: None (occurrence: None)
  Receive Date: 20110427
  Receipt Date: 20090121
  Transmission Date: 20111010
  Serious: Yes (Death, Hospitalization, Other)
  Sender: FDA-Public Use
  Company Number: US-BAYER-200911693NA

PATIENT
  Age: 79 Year
  Sex: Female
  Weight: 93.9 kg

DRUGS (17)
  1. TRASYLOL [Suspect]
     Indication: CORONARY ARTERY BYPASS
     Dosage: 1 ML, INITIAL DOSE
     Route: 042
     Dates: start: 20061115, end: 20061115
  2. HEPARIN [Suspect]
     Indication: PRODUCT USED FOR UNKNOWN INDICATION
  3. HEPARIN [Concomitant]
     Route: 042
  4. ATENOLOL [Concomitant]
     Dosage: 50 MG, BID
     Route: 048
  5. INSULIN GLARGINE [Concomitant]
     Dosage: 25 U, QD
     Route: 058
  6. TRASYLOL [Suspect]
     Indication: INTRA-AORTIC BALLOON PLACEMENT
     Dosage: 100 ML VIA CARDIOPULMONARY BYPASS
     Route: 042
     Dates: start: 20061115, end: 20061115
  7. AMIODARONE [Concomitant]
     Route: 042
  8. DOPAMINE HCL [Concomitant]
     Route: 042
  9. TRASYLOL [Suspect]
     Indication: HIGH FREQUENCY ABLATION
     Dosage: 200 ML LOADING DOSE
     Route: 042
     Dates: start: 20061115, end: 20061115
  10. COUMADIN [Concomitant]
     Dosage: 3 MG, QD
     Route: 048
  11. NITROGLYCERIN [Concomitant]
     Route: 042
  12. TRASYLOL [Suspect]
     Indication: MITRAL VALVE REPLACEMENT
     Dosage: 20 ML/HR INFUSION RATE
     Route: 042
     Dates: start: 20061115, end: 20061115
  13. GLIMEPIRIDE [Concomitant]
     Dosage: 1 MG, QD
     Route: 048
  14. VANCOMYCIN [Concomitant]
     Route: 042
  15. HYZAAR [Concomitant]
     Dosage: 100/25 MG QD
     Route: 048
  16. HEPARIN [Concomitant]
  17. LASIX [Concomitant]
     Dosage: 40 MG, QD
     Route: 048

REACTIONS (17)
  - PULMONARY HYPERTENSION [None]
  - CARDIAC DISORDER [None]
  - ANXIETY [None]
  - INJURY [None]
  - UNEVALUABLE EVENT [None]
  - MITRAL VALVE INCOMPETENCE [None]
  - MULTI-ORGAN FAILURE [None]
  - EMOTIONAL DISTRESS [None]
  - FEAR [None]
  - HEPARIN-INDUCED THROMBOCYTOPENIA [None]
  - RENAL IMPAIRMENT [None]
  - RENAL INJURY [None]
  - RENAL FAILURE [None]
  - CEREBROVASCULAR ACCIDENT [None]
  - ANHEDONIA [None]
  - PAIN [None]
  - STRESS [None]
